FAERS Safety Report 5371403-6 (Version None)
Quarter: 2007Q2

REPORT INFORMATION
  Report Type: 
  Country: None (occurrence: None)
  Receive Date: 20070615
  Receipt Date: 20060918
  Transmission Date: 20071010
  Serious: Yes (Other)
  Sender: FDA-Public Use
  Company Number: 200615363US

PATIENT
  Age: 71 Year
  Sex: Male
  Weight: 76 kg

DRUGS (11)
  1. LANTUS [Suspect]
     Indication: DIABETES MELLITUS NON-INSULIN-DEPENDENT
     Dosage: 28 U QPM; A FEW YEARS
  2. LANTUS [Suspect]
     Indication: DIABETES MELLITUS NON-INSULIN-DEPENDENT
     Dosage: 14 U QPM
     Dates: start: 20060619
  3. LANTUS [Suspect]
     Indication: DIABETES MELLITUS NON-INSULIN-DEPENDENT
     Dosage: 28 U QPM
     Dates: start: 20060620
  4. OPTILICK [Suspect]
     Indication: DIABETES MELLITUS NON-INSULIN-DEPENDENT
  5. NOVOLOG [Suspect]
     Indication: DIABETES MELLITUS NON-INSULIN-DEPENDENT
     Dosage: TID
     Dates: start: 20051001
  6. PIOGLITAZONE [Concomitant]
  7. LOVASTATIN [Concomitant]
  8. COREG [Concomitant]
  9. LISINIOPRIL [Concomitant]
  10. DIGOXIN [Concomitant]
  11. ASPIRIN [Concomitant]

REACTIONS (3)
  - BLOOD GLUCOSE DECREASED [None]
  - BLOOD GLUCOSE INCREASED [None]
  - HYPOGLYCAEMIC COMA [None]
